FAERS Safety Report 8571420-9 (Version None)
Quarter: 2012Q3

REPORT INFORMATION
  Report Type: 
  Country: None (occurrence: None)
  Receive Date: 20120806
  Receipt Date: 20120726
  Transmission Date: 20120928
  Serious: Yes (Life-Threatening, Hospitalization)
  Sender: FDA-Public Use
  Company Number: CA-JNJFOC-20111012611

PATIENT
  Sex: Male

DRUGS (5)
  1. ANTI-HYPERTENSIVE [Concomitant]
  2. DIURETIC [Concomitant]
  3. METHOTREXATE [Concomitant]
  4. REMICADE [Suspect]
     Indication: RHEUMATOID ARTHRITIS
     Route: 042
     Dates: start: 20030207, end: 20110720
  5. PROTON PUMP INHIBITOR [Concomitant]

REACTIONS (2)
  - PNEUMONIA [None]
  - LUNG SQUAMOUS CELL CARCINOMA STAGE UNSPECIFIED [None]
